FAERS Safety Report 4392633-6 (Version None)
Quarter: 2004Q3

REPORT INFORMATION
  Report Type: 
  Country: None (occurrence: None)
  Receive Date: 20040701
  Receipt Date: 20040503
  Transmission Date: 20050211
  Serious: No
  Sender: FDA-Public Use
  Company Number: A04200400411

PATIENT
  Age: 77 Year
  Sex: Female

DRUGS (8)
  1. PLAVIX [Suspect]
     Indication: CORONARY ANGIOPLASTY
     Dosage: 75 M OD    ; ORAL
     Route: 048
     Dates: start: 20030801, end: 20040504
  2. PLAVIX [Suspect]
     Indication: CORONARY ARTERIAL STENT INSERTION
     Dosage: 75 M OD    ; ORAL
     Route: 048
     Dates: start: 20030801, end: 20040504
  3. PLAVIX [Suspect]
     Indication: CORONARY ARTERY DISEASE
     Dosage: 75 M OD    ; ORAL
     Route: 048
     Dates: start: 20030801, end: 20040504
  4. BELOC ZOK MITE (METOPROLOL SUCCINATE) [Concomitant]
  5. KARVEA(IRBESARTAN) [Concomitant]
  6. SORTIS(ATORVASTATIN CALCIUM) [Concomitant]
  7. ISOKET RET. (ISOSORBIDE DINITRATE) [Concomitant]
  8. CORVATON (MOLSIDOMINE) [Concomitant]

REACTIONS (1)
  - HEPATIC NECROSIS [None]
